FAERS Safety Report 23136064 (Version 1)
Quarter: 2023Q4

REPORT INFORMATION
  Report Type: Report from Study
  Country: FR (occurrence: FR)
  Receive Date: 20231102
  Receipt Date: 20231102
  Transmission Date: 20240110
  Serious: Yes (Hospitalization, Other)
  Sender: FDA-Public Use
  Company Number: FR-ABBVIE-5468597

PATIENT

DRUGS (2)
  1. VENETOCLAX [Suspect]
     Active Substance: VENETOCLAX
     Indication: Acute myeloid leukaemia
     Dosage: WAS ADMINISTERED OVER THREE WEEKS, 21 DAYS OUT OF 28, THEN IT WAS REDUCED TO 14 DAYS. 400MG DAILY...
     Route: 048
  2. AZACITIDINE [Suspect]
     Active Substance: AZACITIDINE
     Indication: Acute myeloid leukaemia
     Route: 065

REACTIONS (6)
  - Cytopenia [Recovering/Resolving]
  - Unevaluable event [Unknown]
  - Therapeutic product effect incomplete [Unknown]
  - Condition aggravated [Unknown]
  - Infection [Recovering/Resolving]
  - Toxicity to various agents [Recovering/Resolving]
